FAERS Safety Report 12935799 (Version 1)
Quarter: 2016Q4

REPORT INFORMATION
  Report Type: Spontaneous
  Country: JP (occurrence: JP)
  Receive Date: 20161114
  Receipt Date: 20161114
  Transmission Date: 20170207
  Serious: Yes (Other)
  Sender: FDA-Public Use
  Company Number: JP-PFIZER INC-2016219255

PATIENT

DRUGS (2)
  1. INLYTA [Suspect]
     Active Substance: AXITINIB
     Dosage: 10 MG, DAILY
     Route: 048
  2. INLYTA [Suspect]
     Active Substance: AXITINIB
     Dosage: 20 MG, DAILY

REACTIONS (8)
  - Hypothyroidism [Unknown]
  - Tumour haemorrhage [Unknown]
  - Palmar-plantar erythrodysaesthesia syndrome [Unknown]
  - Hypoproteinaemia [Unknown]
  - Platelet count decreased [Unknown]
  - Neoplasm progression [Unknown]
  - Blood bilirubin increased [Unknown]
  - Ascites [Unknown]

NARRATIVE: CASE EVENT DATE: 20160410
